FAERS Safety Report 21788781 (Version 1)
Quarter: 2022Q4

REPORT INFORMATION
  Report Type: Spontaneous
  Country: MY (occurrence: MY)
  Receive Date: 20221228
  Receipt Date: 20221228
  Transmission Date: 20230113
  Serious: Yes (Death, Life-Threatening, Other)
  Sender: FDA-Public Use
  Company Number: MY-PFIZER INC-PV202200129954

PATIENT
  Age: 60 Year
  Sex: Female

DRUGS (2)
  1. ANIDULAFUNGIN [Suspect]
     Active Substance: ANIDULAFUNGIN
     Indication: Staphylococcal sepsis
     Dosage: UNK
  2. ANIDULAFUNGIN [Suspect]
     Active Substance: ANIDULAFUNGIN
     Indication: Antifungal treatment

REACTIONS (2)
  - Condition aggravated [Fatal]
  - Illness [Fatal]
